FAERS Safety Report 21944183 (Version 1)
Quarter: 2023Q1

REPORT INFORMATION
  Report Type: Spontaneous
  Country: US (occurrence: US)
  Receive Date: 20230202
  Receipt Date: 20230202
  Transmission Date: 20230418
  Serious: Yes (Hospitalization, Other)
  Sender: FDA-Public Use
  Company Number: US-002147023-NVSC2023US021782

PATIENT
  Sex: Female
  Weight: 86.18 kg

DRUGS (5)
  1. AFINITOR [Suspect]
     Active Substance: EVEROLIMUS
     Indication: Renal cancer stage IV
     Dosage: UNK
     Route: 065
  2. INLYTA [Suspect]
     Active Substance: AXITINIB
     Indication: Renal cell carcinoma stage IV
     Dosage: 5 MG, BID (ONE TABLET IN THE MORNING AND EVENING)
     Route: 065
  3. SUTENT [Suspect]
     Active Substance: SUNITINIB MALATE
     Indication: Renal cancer stage IV
     Dosage: UNK
     Route: 065
  4. ALDESLEUKIN [Suspect]
     Active Substance: ALDESLEUKIN
     Indication: Renal cancer stage IV
     Dosage: UNK
     Route: 065
  5. SYNTHROID [Concomitant]
     Active Substance: LEVOTHYROXINE SODIUM
     Indication: Thyroid disorder
     Dosage: 0.125 MG, QD (TABLET DAILY)
     Route: 065

REACTIONS (7)
  - Loss of consciousness [Unknown]
  - Renal cancer stage IV [Unknown]
  - Malignant neoplasm progression [Unknown]
  - Pain in extremity [Unknown]
  - Drug intolerance [Unknown]
  - Palmar-plantar erythrodysaesthesia syndrome [Recovering/Resolving]
  - Blood pressure increased [Unknown]
